FAERS Safety Report 18279100 (Version 3)
Quarter: 2020Q4

REPORT INFORMATION
  Report Type: Spontaneous
  Country: GB (occurrence: GB)
  Receive Date: 20200917
  Receipt Date: 20201123
  Transmission Date: 20210113
  Serious: Yes (Hospitalization)
  Sender: FDA-Public Use
  Company Number: GB-MYLANLABS-2020M1066106

PATIENT
  Age: 76 Year
  Sex: Female

DRUGS (1)
  1. CLOZARIL [Suspect]
     Active Substance: CLOZAPINE
     Indication: SCHIZOPHRENIA
     Dosage: UNK
     Route: 048
     Dates: start: 20020624

REACTIONS (3)
  - Cellulitis [Unknown]
  - Hospitalisation [Unknown]
  - Cardiac failure [Unknown]

NARRATIVE: CASE EVENT DATE: 20201113
